FAERS Safety Report 6878893-8 (Version None)
Quarter: 2010Q3

REPORT INFORMATION
  Report Type: 
  Country: None (occurrence: None)
  Receive Date: 20100728
  Receipt Date: 20100712
  Transmission Date: 20110219
  Serious: Yes (Hospitalization, Other)
  Sender: FDA-Public Use
  Company Number: GB-BAYER-200938095GPV

PATIENT
  Age: 39 Year
  Sex: Female
  Weight: 107 kg

DRUGS (5)
  1. ALEMTUZUMAB [Suspect]
     Indication: MULTIPLE SCLEROSIS
     Route: 042
     Dates: start: 20090330, end: 20090403
  2. METHYLPREDNISOLONE [Concomitant]
     Dates: start: 20090330, end: 20090401
  3. GABAPENTIN [Concomitant]
     Dates: start: 20081201, end: 20090201
  4. GABAPENTIN [Concomitant]
     Dates: start: 20090201
  5. FLUOXETINE [Concomitant]
     Dates: start: 20070601, end: 20090730

REACTIONS (1)
  - MENORRHAGIA [None]
